FAERS Safety Report 5349976-9 (Version None)
Quarter: 2007Q2

REPORT INFORMATION
  Report Type: 
  Country: None (occurrence: None)
  Receive Date: 20070607
  Receipt Date: 20070530
  Transmission Date: 20071010
  Serious: Yes (Death)
  Sender: FDA-Public Use
  Company Number: US-SHR-US-2007-013218

PATIENT
  Age: 73 Year
  Sex: Male

DRUGS (36)
  1. MAGNEVIST [Suspect]
     Indication: NUCLEAR MAGNETIC RESONANCE IMAGING
     Dosage: 20 ML, 1 DOSE
     Route: 042
     Dates: start: 20050224, end: 20050224
  2. MAGNEVIST [Suspect]
     Dosage: 14 ML, 1 DOSE
     Route: 042
     Dates: start: 20050516, end: 20050516
  3. MAGNEVIST [Suspect]
     Dosage: 20 ML, 1 DOSE
     Route: 042
     Dates: start: 20050520, end: 20050520
  4. MAGNEVIST [Suspect]
     Dosage: 13 ML, 1 DOSE
     Route: 042
     Dates: start: 20050602, end: 20050602
  5. MAGNEVIST [Suspect]
     Dosage: 20 ML, 1 DOSE
     Route: 042
     Dates: start: 20050616, end: 20050616
  6. MAGNEVIST [Suspect]
     Dosage: 20 ML, 1 DOSE
     Route: 042
     Dates: start: 20050902, end: 20050902
  7. MAGNEVIST [Suspect]
     Dosage: 20 ML, 1 DOSE
     Route: 042
     Dates: start: 20051123, end: 20051123
  8. MAGNEVIST [Suspect]
     Dosage: 15 ML, 1 DOSE
     Route: 042
     Dates: start: 20060323, end: 20060323
  9. MAGNEVIST [Suspect]
     Dosage: 14 ML, 1 DOSE
     Route: 042
     Dates: start: 20060330, end: 20060330
  10. MAGNEVIST [Suspect]
     Dosage: 15 ML, 1 DOSE
     Route: 042
     Dates: start: 20060407, end: 20060407
  11. MAGNEVIST [Suspect]
     Dosage: 17 ML, 1 DOSE
     Route: 042
     Dates: start: 20060409, end: 20060409
  12. ANTI-COAGULANT THERAPY [Concomitant]
  13. AMIODARONE HCL [Concomitant]
     Dosage: 200 MG, 1X/DAY
     Dates: start: 20051227
  14. EPOGEN [Concomitant]
     Dosage: 10,000 UNITS Q WEEK + INCR. 2006
     Route: 058
  15. IRON [Concomitant]
  16. NEXIUM [Concomitant]
     Dosage: 40 MG, 1X/DAY
     Route: 048
  17. PHOSLO [Concomitant]
     Dosage: 2 TAB(S), 3X/DAY
     Route: 048
  18. SERAX [Concomitant]
     Dosage: 10 MG, BED T.
     Route: 048
  19. SEVELAMER [Concomitant]
     Dosage: 1600 MG, 3X/DAY
     Route: 048
  20. FERROUS SULFATE [Concomitant]
     Dosage: 325 MG, 2X/DAY
  21. MIRALAX [Concomitant]
     Dosage: 17 G, 1X/DAY
  22. SARNA [Concomitant]
  23. AMBIEN [Concomitant]
     Dosage: 5 MG HS PRN
  24. ASPIRIN [Concomitant]
     Dosage: 81 MG, 1X/DAY
  25. LACTULOSE [Concomitant]
     Dosage: 30 ML, 2X/DAY
  26. WARFARIN SODIUM [Concomitant]
     Dosage: 1 MG, 1X/DAY
     Route: 048
  27. ZETIA [Concomitant]
     Dosage: 10 MG, 1X/DAY
  28. CONTRAST MEDIA [Concomitant]
     Route: 042
     Dates: start: 19911003, end: 19911003
  29. CONTRAST MEDIA [Concomitant]
     Route: 042
  30. TECHNETIUM (99M TC) SESTAMIBI [Concomitant]
     Dosage: 1474 MBQ, UNK
     Route: 042
     Dates: start: 20041229, end: 20041229
  31. TECHNETIUM (99M TC) SESTAMIBI [Concomitant]
     Dosage: 350 MBQ, 1 DOSE
     Route: 042
     Dates: start: 20060113, end: 20060113
  32. TECHNETIUM (99M TC) SESTAMIBI [Concomitant]
     Dosage: 1482 MBQ, UNK
     Route: 042
     Dates: start: 20060115, end: 20060115
  33. TECHNETIUM (99M TC) SESTAMIBI [Concomitant]
     Dosage: 1538 MBQ, UNK
     Route: 042
     Dates: start: 20060413, end: 20060413
  34. TECHNETIUM (99M TC) SESTAMIBI [Concomitant]
     Dosage: 1538 MBQ, UNK
     Route: 042
     Dates: start: 20060415, end: 20060415
  35. ARANESP [Concomitant]
  36. ROCALTROL [Concomitant]
     Indication: BONE METABOLISM DISORDER

REACTIONS (3)
  - DEATH [None]
  - NEPHROGENIC FIBROSING DERMOPATHY [None]
  - SERUM FERRITIN INCREASED [None]
